FAERS Safety Report 9096285 (Version 2)
Quarter: 2013Q3

REPORT INFORMATION
  Report Type: Spontaneous
  Country: FR (occurrence: FR)
  Receive Date: 20130207
  Receipt Date: 20130910
  Transmission Date: 20140515
  Serious: Yes (Other)
  Sender: FDA-Public Use
  Company Number: FR-PFIZER INC-2013044006

PATIENT
  Age: 84 Year
  Sex: Female

DRUGS (6)
  1. ZYVOXID [Suspect]
     Indication: SUPERINFECTION BACTERIAL
     Dosage: 600 MG, 2X/DAY
     Route: 048
     Dates: start: 20120714, end: 20120717
  2. PLAVIX [Suspect]
     Dosage: UNK
     Route: 048
     Dates: start: 201203, end: 20120722
  3. SEVIKAR [Concomitant]
     Dosage: UNK
  4. LODOZ [Concomitant]
     Dosage: UNK
  5. KARDEGIC [Concomitant]
     Dosage: UNK
     Dates: start: 201206
  6. AUGMENTIN [Concomitant]
     Indication: SUPERINFECTION BACTERIAL
     Dosage: UNK
     Dates: end: 20120714

REACTIONS (6)
  - Pancytopenia [Recovered/Resolved]
  - Vomiting [Recovered/Resolved]
  - Nausea [Unknown]
  - Epistaxis [Recovered/Resolved]
  - Asthenia [Unknown]
  - Diffuse alopecia [Recovering/Resolving]
